FAERS Safety Report 9236406 (Version 4)
Quarter: 2013Q2

REPORT INFORMATION
  Report Type: Report from Study
  Country: CA (occurrence: CA)
  Receive Date: 20130417
  Receipt Date: 20130624
  Transmission Date: 20140414
  Serious: Yes (Hospitalization)
  Sender: FDA-Public Use
  Company Number: CA-INCYTE CORPORATION-2013IN000732

PATIENT
  Age: 55 Year
  Sex: Male

DRUGS (7)
  1. JAKAVI [Suspect]
     Indication: MYELOFIBROSIS
     Dosage: 20 MG, BID
     Route: 048
     Dates: start: 201211
  2. JAKAVI [Suspect]
     Dosage: 20 MG, QD
     Route: 048
  3. JAKAVI [Suspect]
     Dosage: 20 MG, BID
     Route: 048
     Dates: start: 20130430
  4. JAKAVI [Suspect]
     Dosage: 20 MG, BID
     Route: 048
  5. WELLBUTRIN [Concomitant]
  6. DEXEDRINE [Concomitant]
  7. DANAZOL [Concomitant]

REACTIONS (6)
  - Influenza [Unknown]
  - Pneumonia [Unknown]
  - Malaise [Unknown]
  - Platelet count increased [Unknown]
  - Full blood count increased [Unknown]
  - Haemoglobin decreased [Unknown]
